FAERS Safety Report 5151561-9 (Version None)
Quarter: 2006Q4

REPORT INFORMATION
  Report Type: 
  Country: None (occurrence: None)
  Receive Date: 20061109
  Receipt Date: 20061027
  Transmission Date: 20070319
  Serious: Yes (Other)
  Sender: FDA-Public Use
  Company Number: 2006-149746-NL

PATIENT
  Age: 18 Year
  Sex: Female
  Weight: 49.9 kg

DRUGS (1)
  1. NUVARING [Suspect]
     Dosage: VAGINAL
     Route: 067
     Dates: start: 20060101, end: 20060101

REACTIONS (7)
  - AUTOIMMUNE DISORDER [None]
  - CHILLBLAINS [None]
  - CRYOGLOBULINAEMIA [None]
  - PAIN IN EXTREMITY [None]
  - SKIN DISCOLOURATION [None]
  - SKIN NODULE [None]
  - SYSTEMIC LUPUS ERYTHEMATOSUS [None]
